FAERS Safety Report 8465859-X (Version None)
Quarter: 2012Q2

REPORT INFORMATION
  Report Type: 
  Country: None (occurrence: None)
  Receive Date: 20120626
  Receipt Date: 20120511
  Transmission Date: 20120825
  Serious: No
  Sender: FDA-Public Use
  Company Number: US-ASTRAZENECA-2012SE30694

PATIENT
  Sex: Male

DRUGS (1)
  1. SYMBICORT [Suspect]
     Dosage: 80/ 4.5 TWO PUFFS, TWO TIMES A DAY
     Route: 055

REACTIONS (5)
  - DRUG DOSE OMISSION [None]
  - SEPSIS [None]
  - MEMORY IMPAIRMENT [None]
  - CONDITION AGGRAVATED [None]
  - CHRONIC OBSTRUCTIVE PULMONARY DISEASE [None]
